FAERS Safety Report 24857178 (Version 3)
Quarter: 2025Q1

REPORT INFORMATION
  Report Type: Spontaneous
  Country: US (occurrence: US)
  Receive Date: 20250117
  Receipt Date: 20250123
  Transmission Date: 20250409
  Serious: No
  Sender: NOVARTIS
  Company Number: US-SANDOZ-SDZ2025US002309

PATIENT
  Age: 64 Year

DRUGS (2)
  1. KISQALI [Suspect]
     Active Substance: RIBOCICLIB
     Indication: Product used for unknown indication
     Dosage: 600 MG, QD
     Route: 048
     Dates: start: 202411
  2. ZOFRAN [Suspect]
     Active Substance: ONDANSETRON HYDROCHLORIDE
     Indication: Product used for unknown indication
     Route: 065

REACTIONS (5)
  - Memory impairment [Unknown]
  - Fatigue [Unknown]
  - Vomiting [Recovering/Resolving]
  - Liver function test increased [Unknown]
  - Nausea [Recovering/Resolving]

NARRATIVE: CASE EVENT DATE: 20241101
